FAERS Safety Report 16744758 (Version 1)
Quarter: 2019Q4

REPORT INFORMATION
  Report Type: Spontaneous
  Country: GB (occurrence: GB)
  Receive Date: 20190826
  Receipt Date: 20190826
  Transmission Date: 20200122
  Serious: Yes (Disabling)
  Sender: FDA-Public Use
  Company Number: None

PATIENT
  Age: 28 Year
  Sex: Male
  Weight: 77 kg

DRUGS (1)
  1. PROPECIA [Suspect]
     Active Substance: FINASTERIDE
     Indication: ANDROGENETIC ALOPECIA

REACTIONS (6)
  - Penis disorder [None]
  - Erectile dysfunction [None]
  - Feeling cold [None]
  - Penile size reduced [None]
  - Loss of libido [None]
  - Ejaculation disorder [None]

NARRATIVE: CASE EVENT DATE: 20190106
